FAERS Safety Report 13625179 (Version 1)
Quarter: 2017Q2

REPORT INFORMATION
  Report Type: Spontaneous
  Country: HR (occurrence: None)
  Receive Date: 20170605
  Receipt Date: 20170605
  Transmission Date: 20170830
  Serious: Yes (Other)
  Sender: FDA-Public Use
  Company Number: HR2017K3877SPO

PATIENT
  Sex: Female

DRUGS (4)
  1. NALGESIN FORTE (NAPROXEN) FILM-COATED TABLET, 550 MG [Suspect]
     Active Substance: NAPROXEN
     Route: 048
     Dates: start: 20170208, end: 20170208
  2. ALOPURINOL (ALLOPURINOL) [Suspect]
     Active Substance: ALLOPURINOL
     Route: 048
     Dates: start: 20170208, end: 20170208
  3. NINUR 50 MG KAPSULE (NITROFURANTOIN) [Suspect]
     Active Substance: NITROFURANTOIN
     Route: 048
     Dates: start: 20170208, end: 20170208
  4. ENAP (ENALAPRIL) TABLET [Suspect]
     Active Substance: ENALAPRIL
     Route: 048
     Dates: start: 20170208, end: 20170208

REACTIONS (3)
  - Somnolence [None]
  - Intentional overdose [None]
  - Suicide attempt [None]

NARRATIVE: CASE EVENT DATE: 20170208
